FAERS Safety Report 8115531-0 (Version None)
Quarter: 2012Q1

REPORT INFORMATION
  Report Type: 
  Country: None (occurrence: None)
  Receive Date: 20120124
  Receipt Date: 20120106
  Transmission Date: 20120608
  Serious: Yes (Hospitalization)
  Sender: FDA-Public Use
  Company Number: WSDF_00677

PATIENT
  Sex: Male
  Weight: 130.8627 kg

DRUGS (16)
  1. ASPIRIN [Concomitant]
  2. SONATA [Concomitant]
  3. SULAR [Concomitant]
  4. PEPCID [Concomitant]
  5. ACETAMINOPHEN [Concomitant]
  6. CARAFATE [Concomitant]
  7. DESYREL [Concomitant]
  8. GLIPIZIDE [Concomitant]
  9. PHENERGAN [Concomitant]
  10. WINRHO SDF LIQUID [Suspect]
     Indication: IDIOPATHIC THROMBOCYTOPENIC PURPURA
     Dosage: (75 UG/KG TOTAL INTRAVENOUS (NOT OTHERWISE SPECIFIED))
     Route: 042
     Dates: start: 20070912, end: 20070912
  11. CARDIZEM [Concomitant]
  12. OXYCODONE HCL AND ACETAMINOPHEN [Concomitant]
  13. FLEXERIL [Concomitant]
  14. STARLIX [Concomitant]
  15. STOOL SOFTENER [Concomitant]
  16. INSULIN [Concomitant]

REACTIONS (12)
  - PAIN IN EXTREMITY [None]
  - MYOGLOBINURIA [None]
  - OVERDOSE [None]
  - HAEMOGLOBIN DECREASED [None]
  - DRUG HYPERSENSITIVITY [None]
  - ASPARTATE AMINOTRANSFERASE INCREASED [None]
  - MYALGIA [None]
  - CHROMATURIA [None]
  - BLOOD ALKALINE PHOSPHATASE INCREASED [None]
  - ABDOMINAL PAIN [None]
  - BLOOD GLUCOSE INCREASED [None]
  - HAEMOLYSIS [None]
